FAERS Safety Report 19374878 (Version 1)
Quarter: 2021Q2

REPORT INFORMATION
  Report Type: Spontaneous
  Country: US (occurrence: US)
  Receive Date: 20210604
  Receipt Date: 20210604
  Transmission Date: 20210717
  Serious: Yes (Life-Threatening, Hospitalization)
  Sender: FDA-Public Use
  Company Number: US-MYLANLABS-2021M1032207

PATIENT
  Age: 36 Year
  Sex: Female

DRUGS (3)
  1. DEXMEDETOMIDINE. [Suspect]
     Active Substance: DEXMEDETOMIDINE
     Indication: SEDATIVE THERAPY
     Dosage: UNK
     Route: 065
  2. DIPHENHYDRAMINE. [Suspect]
     Active Substance: DIPHENHYDRAMINE
     Indication: SEDATIVE THERAPY
     Dosage: UNK
     Route: 065
  3. DIGOXIN. [Suspect]
     Active Substance: DIGOXIN
     Indication: PRODUCT USED FOR UNKNOWN INDICATION
     Dosage: 450 MICROGRAM
     Route: 037

REACTIONS (8)
  - Incorrect route of product administration [Unknown]
  - Encephalopathy [Recovering/Resolving]
  - Maternal exposure during delivery [Recovered/Resolved]
  - Hypokalaemia [Unknown]
  - Cerebrovascular accident [Unknown]
  - Electrocardiogram QT prolonged [Unknown]
  - Respiratory failure [Recovering/Resolving]
  - Seizure [Unknown]
